FAERS Safety Report 9701653 (Version 3)
Quarter: 2013Q4

REPORT INFORMATION
  Report Type: Spontaneous
  Country: JP (occurrence: JP)
  Receive Date: 20131121
  Receipt Date: 20131217
  Transmission Date: 20140711
  Serious: Yes (Hospitalization, Other)
  Sender: FDA-Public Use
  Company Number: JP-JNJFOC-20131110408

PATIENT
  Age: 46 Year
  Sex: Female

DRUGS (3)
  1. INFLIXIMAB, RECOMBINANT [Suspect]
     Indication: UVEITIS
     Route: 042
  2. INFLIXIMAB, RECOMBINANT [Suspect]
     Indication: BEHCET^S SYNDROME
     Route: 042
  3. CYCLOSPORIN A [Suspect]
     Indication: UVEITIS
     Route: 065

REACTIONS (1)
  - Behcet^s syndrome [Recovering/Resolving]
